FAERS Safety Report 9092615 (Version 1)
Quarter: 2013Q1

REPORT INFORMATION
  Report Type: Report from Study
  Country: US (occurrence: US)
  Receive Date: 20130131
  Receipt Date: 20130131
  Transmission Date: 20140127
  Serious: No
  Sender: FDA-Public Use
  Company Number: US-ABBOTT-12P-163-0963534-00

PATIENT
  Age: 35 Year
  Sex: Female

DRUGS (23)
  1. HUMIRA [Suspect]
     Indication: CROHN^S DISEASE
     Dosage: LOADING DOSE
     Dates: start: 20120801, end: 20120801
  2. HUMIRA [Suspect]
  3. PREDNISONE [Concomitant]
     Indication: CROHN^S DISEASE
     Dosage: 20MG DAILY
     Route: 048
  4. PERCOCET [Concomitant]
     Indication: PAIN
     Dosage: 7.5MG DAILY AS NEEDED
     Route: 048
  5. VISTARIL [Concomitant]
     Indication: INSOMNIA
     Dosage: 25MG AS NEEDED
     Route: 048
  6. VISTARIL [Concomitant]
     Indication: NERVOUSNESS
  7. ATARAX [Concomitant]
     Indication: INSOMNIA
     Route: 048
  8. ATARAX [Concomitant]
     Indication: NERVOUSNESS
  9. TIZANIDINE [Concomitant]
     Indication: MUSCLE RELAXANT THERAPY
     Dosage: 4MG DAILY AT BEDTIME
     Route: 048
  10. HYDROCODONE [Concomitant]
     Indication: PAIN
     Route: 048
  11. OMEPRAZOLE [Concomitant]
     Indication: DYSPEPSIA
     Dosage: 40MG DAILY
     Route: 048
  12. DICYCLOMINE [Concomitant]
     Indication: CROHN^S DISEASE
     Dosage: 10MG DAILY
     Route: 048
  13. PROZAC [Concomitant]
     Indication: DEPRESSION
     Dosage: 40MG DAILY
     Route: 048
  14. VALIUM [Concomitant]
     Indication: PRODUCT USED FOR UNKNOWN INDICATION
     Dosage: 5-10MG DAILY AS NEEDED
     Route: 048
  15. PROMETHAZINE [Concomitant]
     Indication: NAUSEA
     Route: 061
  16. PEPTO-BISMOL [Concomitant]
     Indication: GASTRIC DISORDER
     Dosage: 2 TABLETS DAILY
  17. ADVIL [Concomitant]
     Indication: PAIN
     Route: 048
  18. LAXATIVES [Concomitant]
     Indication: CONSTIPATION
     Route: 048
  19. GLUCOSAMINE CHONDROITIN [Concomitant]
     Indication: PRODUCT USED FOR UNKNOWN INDICATION
  20. MULTIVITAMIN [Concomitant]
     Indication: PRODUCT USED FOR UNKNOWN INDICATION
  21. IMMUNE BOOSTER SUPPLEMENT [Concomitant]
     Indication: PRODUCT USED FOR UNKNOWN INDICATION
  22. LEXAPRO [Concomitant]
  23. SEROQUEL [Concomitant]

REACTIONS (15)
  - Injection site pain [Not Recovered/Not Resolved]
  - Nausea [Not Recovered/Not Resolved]
  - Pain [Not Recovered/Not Resolved]
  - Acne [Not Recovered/Not Resolved]
  - Nervousness [Not Recovered/Not Resolved]
  - Skin mass [Not Recovered/Not Resolved]
  - Crohn^s disease [Not Recovered/Not Resolved]
  - Gastrointestinal pain [Not Recovered/Not Resolved]
  - Frequent bowel movements [Not Recovered/Not Resolved]
  - Alcohol use [Not Recovered/Not Resolved]
  - Influenza like illness [Not Recovered/Not Resolved]
  - Fatigue [Not Recovered/Not Resolved]
  - Hypoaesthesia [Not Recovered/Not Resolved]
  - Anxiety [Not Recovered/Not Resolved]
  - Diarrhoea [Recovered/Resolved]
